FAERS Safety Report 15184766 (Version 3)
Quarter: 2018Q4

REPORT INFORMATION
  Report Type: Spontaneous
  Country: DE (occurrence: DE)
  Receive Date: 20180723
  Receipt Date: 20181003
  Transmission Date: 20190204
  Serious: Yes (Other)
  Sender: FDA-Public Use
  Company Number: PHHY2018DE048976

PATIENT
  Age: 13 Year
  Sex: Female
  Weight: 37.1 kg

DRUGS (9)
  1. RIBAVIRIN. [Interacting]
     Active Substance: RIBAVIRIN
     Dosage: 200 MG, BID (5 MG/KG AFTER 10 WEEKS)
     Route: 048
  2. TACROLIMUS. [Interacting]
     Active Substance: TACROLIMUS
     Indication: IMMUNOSUPPRESSION
     Route: 065
  3. MYCOPHENOLATE MOFETIL. [Interacting]
     Active Substance: MYCOPHENOLATE MOFETIL
     Indication: PROPHYLAXIS AGAINST TRANSPLANT REJECTION
  4. MYCOPHENOLATE MOFETIL. [Suspect]
     Active Substance: MYCOPHENOLATE MOFETIL
     Indication: IMMUNOSUPPRESSION
     Route: 065
  5. RIBAVIRIN. [Interacting]
     Active Substance: RIBAVIRIN
     Dosage: 75 MG, UNK
     Route: 048
  6. RIBAVIRIN. [Interacting]
     Active Substance: RIBAVIRIN
     Dosage: 50 MG, QD
     Route: 048
  7. TACROLIMUS. [Interacting]
     Active Substance: TACROLIMUS
     Indication: PROPHYLAXIS AGAINST TRANSPLANT REJECTION
  8. RIBAVIRIN. [Interacting]
     Active Substance: RIBAVIRIN
     Indication: PRODUCT USED FOR UNKNOWN INDICATION
     Dosage: 25 MG, QD
     Route: 048
  9. RIBAVIRIN. [Interacting]
     Active Substance: RIBAVIRIN
     Dosage: 200 MG, BID (10 MG/KG OF BODY WEIGHT PER DAY)
     Route: 048

REACTIONS (7)
  - Aplastic anaemia [Recovered/Resolved]
  - Drug interaction [Unknown]
  - Hepatitis C [Unknown]
  - Off label use [Unknown]
  - Hepatitis E [Not Recovered/Not Resolved]
  - Anaemia [Not Recovered/Not Resolved]
  - Intentional product use issue [Unknown]
